FAERS Safety Report 16019627 (Version 1)
Quarter: 2019Q1

REPORT INFORMATION
  Report Type: Spontaneous
  Country: CH (occurrence: CH)
  Receive Date: 20190228
  Receipt Date: 20190228
  Transmission Date: 20190418
  Serious: Yes (Hospitalization)
  Sender: FDA-Public Use
  Company Number: CH-PFIZER INC-2019082059

PATIENT
  Age: 31 Year
  Sex: Male
  Weight: 59.7 kg

DRUGS (2)
  1. TEMESTA [LORAZEPAM] [Suspect]
     Active Substance: LORAZEPAM
     Dosage: 4 DF, IN TOTAL
     Route: 048
     Dates: start: 20190109, end: 20190109
  2. VOLTAREN [Suspect]
     Active Substance: DICLOFENAC SODIUM
     Dosage: 400MG (8 TABLETS OF 50MG, IN TOTAL)
     Route: 048
     Dates: start: 20190109, end: 20190109

REACTIONS (2)
  - Acute kidney injury [Recovered/Resolved]
  - Drug abuse [Recovering/Resolving]

NARRATIVE: CASE EVENT DATE: 20190109
